FAERS Safety Report 12114208 (Version 1)
Quarter: 2016Q1

REPORT INFORMATION
  Report Type: Spontaneous
  Country: US (occurrence: US)
  Receive Date: 20160225
  Receipt Date: 20160225
  Transmission Date: 20160526
  Serious: No
  Sender: FDA-Public Use
  Company Number: US-LANTHEUS-LMI-2015-00231

PATIENT
  Age: 35 Year
  Sex: Female
  Weight: 77 kg

DRUGS (4)
  1. DEFINITY [Suspect]
     Active Substance: PERFLUTREN
     Indication: STRESS ECHOCARDIOGRAM
     Dosage: 1.5 ML DEFINITY DILUTED IN 8.5 ML SALINE
     Route: 040
     Dates: start: 20150504, end: 20150504
  2. DEFINITY [Suspect]
     Active Substance: PERFLUTREN
     Indication: STRESS ECHOCARDIOGRAM
     Dosage: 1.5 ML DEFINITY DILUTED IN 8.5 ML SALINE
     Route: 040
     Dates: start: 20150504, end: 20150504
  3. LEVOTHYROXINE. [Concomitant]
     Active Substance: LEVOTHYROXINE
     Indication: PRODUCT USED FOR UNKNOWN INDICATION
  4. DEFINITY [Suspect]
     Active Substance: PERFLUTREN
     Indication: STRESS ECHOCARDIOGRAM
     Dosage: 1.5 ML DEFINITY DILUTED IN 8.5 ML SALINE
     Route: 040
     Dates: start: 20150504, end: 20150504

REACTIONS (3)
  - Feeling abnormal [Not Recovered/Not Resolved]
  - Heart rate increased [Not Recovered/Not Resolved]
  - Paraesthesia [Not Recovered/Not Resolved]

NARRATIVE: CASE EVENT DATE: 20150504
